FAERS Safety Report 4621887-3 (Version None)
Quarter: 2005Q1

REPORT INFORMATION
  Report Type: 
  Country: None (occurrence: None)
  Receive Date: 20050329
  Receipt Date: 20050323
  Transmission Date: 20050727
  Serious: Yes (Life-Threatening, Hospitalization)
  Sender: FDA-Public Use
  Company Number: PHNU2005DE01455

PATIENT
  Age: 7 Year
  Sex: Male

DRUGS (3)
  1. CORTISONE [Concomitant]
  2. LASIX [Concomitant]
  3. SANDIMMUNE [Suspect]
     Indication: GLOMERULONEPHRITIS MINIMAL LESION
     Dosage: 80 MG, BID
     Dates: start: 20050301

REACTIONS (6)
  - APNOEA [None]
  - BLOOD PRESSURE INCREASED [None]
  - CARDIAC ARREST [None]
  - EPILEPSY [None]
  - HYPERTENSIVE CRISIS [None]
  - RESUSCITATION [None]
